FAERS Safety Report 13540504 (Version 1)
Quarter: 2017Q2

REPORT INFORMATION
  Report Type: Spontaneous
  Country: JP (occurrence: JP)
  Receive Date: 20170512
  Receipt Date: 20170512
  Transmission Date: 20170830
  Serious: Yes (Other)
  Sender: FDA-Public Use
  Company Number: JP-MYLANLABS-2017M1028532

PATIENT

DRUGS (3)
  1. CISPLATIN. [Suspect]
     Active Substance: CISPLATIN
     Indication: HEPATOCELLULAR CARCINOMA
     Dosage: LOW DOSE
     Route: 065
  2. IA-CALL [Suspect]
     Active Substance: CISPLATIN
     Indication: PORTAL VEIN THROMBOSIS
     Dosage: CISPLATIN IN LIPIODOL EMULSION
     Route: 065
  3. FLUOROURACIL. [Concomitant]
     Active Substance: FLUOROURACIL
     Indication: PORTAL VEIN THROMBOSIS
     Route: 065

REACTIONS (1)
  - Drug-induced liver injury [Unknown]
